FAERS Safety Report 9795520 (Version 1)
Quarter: 2014Q1

REPORT INFORMATION
  Report Type: Spontaneous
  Country: CA (occurrence: CA)
  Receive Date: 20140103
  Receipt Date: 20140103
  Transmission Date: 20141002
  Serious: Yes (Other)
  Sender: FDA-Public Use
  Company Number: CA-JNJFOC-20131218030

PATIENT
  Age: 37 Year
  Sex: Female
  Weight: 69.85 kg

DRUGS (4)
  1. INVEGA [Suspect]
     Indication: ANXIETY
     Route: 048
     Dates: start: 2013
  2. INVEGA [Suspect]
     Indication: ANXIETY
     Route: 048
     Dates: start: 201107, end: 201206
  3. INVEGA [Suspect]
     Indication: OBSESSIVE-COMPULSIVE DISORDER
     Route: 048
     Dates: start: 2013
  4. INVEGA [Suspect]
     Indication: OBSESSIVE-COMPULSIVE DISORDER
     Route: 048
     Dates: start: 201107, end: 201206

REACTIONS (7)
  - Coeliac disease [Not Recovered/Not Resolved]
  - Obsessive-compulsive disorder [Unknown]
  - Hunger [Not Recovered/Not Resolved]
  - Arthralgia [Not Recovered/Not Resolved]
  - Off label use [Unknown]
  - Therapeutic response unexpected [Unknown]
  - Anxiety [Unknown]
